FAERS Safety Report 4370868-6 (Version None)
Quarter: 2004Q2

REPORT INFORMATION
  Report Type: 
  Country: None (occurrence: None)
  Receive Date: 20040601
  Receipt Date: 20040517
  Transmission Date: 20050107
  Serious: Yes (Death)
  Sender: FDA-Public Use
  Company Number: SI-SHR-04-025012

PATIENT
  Age: 49 Year
  Sex: Female
  Weight: 55 kg

DRUGS (2)
  1. BETAFERON (INTERFERON BETA - 1B) INJECTION, 250 UG [Suspect]
     Indication: MULTIPLE SCLEROSIS
     Dosage: 8 MIU, SUCUTANEOUS
     Route: 058
     Dates: start: 19990101, end: 20040226
  2. CORTICOISTEROIDS [Concomitant]

REACTIONS (1)
  - GLIOBLASTOMA [None]
